FAERS Safety Report 16116909 (Version 1)
Quarter: 2019Q2

REPORT INFORMATION
  Report Type: Spontaneous
  Country: US (occurrence: US)
  Receive Date: 20190325
  Receipt Date: 20190325
  Transmission Date: 20190711
  Serious: Yes (Hospitalization)
  Sender: FDA-Public Use
  Company Number: None

PATIENT
  Age: 51 Year
  Sex: Male

DRUGS (7)
  1. CAPECITABINE. [Suspect]
     Active Substance: CAPECITABINE
     Indication: PRODUCT USED FOR UNKNOWN INDICATION
     Dosage: ?          OTHER FREQUENCY:BID FOR 14 DAYS;?
     Route: 048
     Dates: start: 20190112
  2. FENTANYL. [Concomitant]
     Active Substance: FENTANYL
  3. MORPHINE [Concomitant]
     Active Substance: MORPHINE
  4. TRIFLURIDINE. [Concomitant]
     Active Substance: TRIFLURIDINE
  5. HYDROMORPHON [Concomitant]
     Active Substance: HYDROMORPHONE
  6. OXYCODONE [Concomitant]
     Active Substance: OXYCODONE
  7. ALPRAZOLAM. [Concomitant]
     Active Substance: ALPRAZOLAM

REACTIONS (1)
  - Malaise [None]

NARRATIVE: CASE EVENT DATE: 20190311
